FAERS Safety Report 4408307-9 (Version None)
Quarter: 2004Q3

REPORT INFORMATION
  Report Type: 
  Country: None (occurrence: None)
  Receive Date: 20040722
  Receipt Date: 20040708
  Transmission Date: 20050211
  Serious: Yes (Hospitalization)
  Sender: FDA-Public Use
  Company Number: CERZ-10608

PATIENT
  Age: 4 Year
  Sex: Male
  Weight: 15.5 kg

DRUGS (1)
  1. CEREZYME [Suspect]
     Indication: GAUCHER'S DISEASE
     Dosage: 1000 UNITS Q2WKS, IV
     Route: 042
     Dates: start: 20021101

REACTIONS (1)
  - TONSILLAR DISORDER [None]
